FAERS Safety Report 10119630 (Version 2)
Quarter: 2014Q2

REPORT INFORMATION
  Report Type: Spontaneous
  Country: US (occurrence: US)
  Receive Date: 20140425
  Receipt Date: 20140429
  Transmission Date: 20141212
  Serious: Yes (Other)
  Sender: FDA-Public Use
  Company Number: US-PFIZER INC-2014112930

PATIENT
  Age: 37 Year
  Sex: Male
  Weight: 127 kg

DRUGS (3)
  1. RAPAMUNE [Suspect]
     Indication: RENAL TRANSPLANT
     Dosage: 1 MG, DAILY
     Dates: start: 2013
  2. RAPAMUNE [Suspect]
     Dosage: 2 MG, UNK
     Dates: start: 2013
  3. SIMVASTATIN [Concomitant]
     Indication: BLOOD CHOLESTEROL ABNORMAL
     Dosage: 40 MG, DAILY

REACTIONS (1)
  - Neoplasm malignant [Unknown]
